FAERS Safety Report 12966693 (Version 3)
Quarter: 2017Q1

REPORT INFORMATION
  Report Type: Report from Study
  Country: US (occurrence: US)
  Receive Date: 20161122
  Receipt Date: 20170103
  Transmission Date: 20170428
  Serious: Yes (Hospitalization)
  Sender: FDA-Public Use
  Company Number: US-MYLANLABS-2016M1050727

PATIENT

DRUGS (2)
  1. CLOZAPINE. [Suspect]
     Active Substance: CLOZAPINE
     Indication: PRODUCT USED FOR UNKNOWN INDICATION
     Dosage: UNK
  2. CLOZAPINE. [Suspect]
     Active Substance: CLOZAPINE
     Dosage: UNK
     Dates: start: 2016

REACTIONS (5)
  - Intentional product use issue [Unknown]
  - Refusal of treatment by patient [Unknown]
  - Psychotic disorder [Unknown]
  - No adverse event [Unknown]
  - Catatonia [Unknown]

NARRATIVE: CASE EVENT DATE: 2016
